FAERS Safety Report 8803142 (Version 1)
Quarter: 2012Q4

REPORT INFORMATION
  Report Type: Report from Study
  Country: CA (occurrence: CA)
  Receive Date: 20120924
  Receipt Date: 20120924
  Transmission Date: 20130627
  Serious: Yes (Other)
  Sender: FDA-Public Use
  Company Number: CA-JNJFOC-20120906310

PATIENT
  Age: 43 Year
  Sex: Male
  Weight: 117 kg

DRUGS (1)
  1. REMICADE [Suspect]
     Indication: CROHN^S DISEASE
     Dosage: The patient has received 15 treatments
     Route: 042

REACTIONS (3)
  - Bacterial infection [Unknown]
  - Abscess [Unknown]
  - Fistula [Unknown]
